FAERS Safety Report 4396265-5 (Version None)
Quarter: 2004Q2

REPORT INFORMATION
  Report Type: 
  Country: None (occurrence: None)
  Receive Date: 20040621
  Receipt Date: 20031121
  Transmission Date: 20050107
  Serious: Yes (Death)
  Sender: FDA-Public Use
  Company Number: USA-2003-0010933

PATIENT
  Age: 39 Year
  Sex: Male

DRUGS (11)
  1. OXYCODONE HCL [Suspect]
  2. HYDROCODONE BITARTRATE [Suspect]
  3. OXYCODONE HCL [Suspect]
  4. HYDROMORPHONE HYDROCHLORIDE [Suspect]
  5. NAPROXEN [Suspect]
  6. EPHEDRINE SUL CAP [Suspect]
  7. CHLORPHENIRAMINE TAB [Suspect]
  8. SOMA [Suspect]
  9. DIAZEPAM [Suspect]
  10. XANAX [Suspect]
  11. MEPROBAMATE [Suspect]

REACTIONS (2)
  - ACCIDENTAL OVERDOSE [None]
  - MULTIPLE DRUG OVERDOSE [None]
